FAERS Safety Report 7622863-9 (Version None)
Quarter: 2011Q3

REPORT INFORMATION
  Report Type: 
  Country: None (occurrence: None)
  Receive Date: 20110720
  Receipt Date: 20110712
  Transmission Date: 20111222
  Serious: Yes (Other)
  Sender: FDA-Public Use
  Company Number: JP-BAYER-2011-043657

PATIENT
  Age: 68 Year
  Sex: Male
  Weight: 70 kg

DRUGS (5)
  1. SORAFENIB (RAF KINASE INHIBITOR) [Suspect]
     Indication: HEPATIC NEOPLASM MALIGNANT
     Dosage: DAILY DOSE 400 MG
     Route: 048
     Dates: start: 20101201, end: 20110125
  2. RABEPRAZOLE SODIUM [Concomitant]
     Indication: ABDOMINAL PAIN UPPER
     Dosage: DAILY DOSE 10 MG
     Route: 048
     Dates: start: 19970101
  3. NOVORAPID [Concomitant]
     Indication: DIABETES MELLITUS
     Dosage: 16 U, BID
     Route: 058
     Dates: start: 19970101
  4. CARVEDILOL [Concomitant]
     Indication: HYPERTENSION
     Dosage: DAILY DOSE 20 MG
     Route: 048
     Dates: start: 19970101
  5. ADALAT CC [Concomitant]
     Indication: HYPERTENSION
     Dosage: DAILY DOSE 10 MG
     Route: 048
     Dates: start: 19970101

REACTIONS (1)
  - HEPATIC ENCEPHALOPATHY [None]
